FAERS Safety Report 6025284-8 (Version None)
Quarter: 2008Q4

REPORT INFORMATION
  Report Type: 
  Country: None (occurrence: None)
  Receive Date: 20081231
  Receipt Date: 20081222
  Transmission Date: 20090506
  Serious: Yes (Other)
  Sender: FDA-Public Use
  Company Number: PHEH2008US11331

PATIENT

DRUGS (1)
  1. RECLAST [Suspect]

REACTIONS (3)
  - DRUG INEFFECTIVE [None]
  - FRACTURE [None]
  - OSTEOPENIA [None]
